FAERS Safety Report 5932861-9 (Version None)
Quarter: 2008Q4

REPORT INFORMATION
  Report Type: 
  Country: None (occurrence: None)
  Receive Date: 20081028
  Receipt Date: 20081023
  Transmission Date: 20090506
  Serious: Yes (Disabling)
  Sender: FDA-Public Use
  Company Number: FR-WYE-H05308008

PATIENT
  Age: 72 Year
  Sex: Male

DRUGS (9)
  1. OROKEN [Suspect]
     Indication: URINARY TRACT INFECTION
     Route: 048
     Dates: start: 20080401, end: 20080501
  2. OROKEN [Suspect]
     Indication: SEPSIS
  3. DOLIPRANE [Concomitant]
     Dosage: UNKNOWN
     Route: 048
  4. KALEORID [Concomitant]
     Dosage: UNKNOWN
  5. CRESTOR [Concomitant]
     Dosage: UNKNOWN
  6. POTASSIUM CHLORIDE [Concomitant]
     Dosage: UNKNOWN
  7. OFLOCET [Suspect]
     Indication: URINARY TRACT INFECTION
     Route: 048
     Dates: start: 20080401, end: 20080430
  8. OFLOCET [Suspect]
     Indication: SEPSIS
  9. FLUDEX [Concomitant]
     Dosage: UNKNOWN

REACTIONS (2)
  - ARTHRALGIA [None]
  - INSOMNIA [None]
